FAERS Safety Report 7741088-X (Version None)
Quarter: 2011Q3

REPORT INFORMATION
  Report Type: 
  Country: None (occurrence: None)
  Receive Date: 20110909
  Receipt Date: 20110831
  Transmission Date: 20111222
  Serious: Yes (Other)
  Sender: FDA-Public Use
  Company Number: CA-BRISTOL-MYERS SQUIBB COMPANY-16037129

PATIENT
  Age: 60 Year
  Sex: Male
  Weight: 48 kg

DRUGS (3)
  1. FLUOROURACIL [Suspect]
     Indication: HEAD AND NECK CANCER
     Dosage: INF : 2, LAST INF ON 23JUN11
     Dates: start: 20110525
  2. ERBITUX [Suspect]
     Indication: HEAD AND NECK CANCER
     Dosage: INF : 5, LAST INF ON 07JUL11
     Dates: start: 20110525
  3. CISPLATIN [Suspect]
     Indication: HEAD AND NECK CANCER
     Dosage: INF : 2, LAST INF ON 23JUN11
     Dates: start: 20110525

REACTIONS (1)
  - PULMONARY EMBOLISM [None]
